FAERS Safety Report 4875557-7 (Version None)
Quarter: 2006Q1

REPORT INFORMATION
  Report Type: 
  Country: None (occurrence: None)
  Receive Date: 20060105
  Receipt Date: 20050426
  Transmission Date: 20060701
  Serious: No
  Sender: FDA-Public Use
  Company Number: A001-PMS-3764

PATIENT
  Age: 73 Year
  Sex: Male

DRUGS (8)
  1. ARICEPT [Suspect]
     Indication: DEMENTIA
     Dosage: 10 MG, 1 IN 1 D, ORAL
     Route: 048
     Dates: start: 20040714, end: 20040921
  2. CITALOPRAM (CITALOPRAM) [Concomitant]
  3. MELPERON (MELPERONE) [Concomitant]
  4. TRENTAL [Concomitant]
  5. CEPHOPRIL [Concomitant]
  6. DIGITOXIN TAB [Concomitant]
  7. BEZAFIBRAT (BEZAFIBRATE) [Concomitant]
  8. ACTRAPHANE (INSULIN HUMAN INJECTION, ISOPHANE) [Concomitant]

REACTIONS (5)
  - COGNITIVE DISORDER [None]
  - DEPRESSION [None]
  - EXTRAPYRAMIDAL DISORDER [None]
  - GENERAL PHYSICAL HEALTH DETERIORATION [None]
  - MENTAL STATUS CHANGES [None]
